FAERS Safety Report 5623290-6 (Version None)
Quarter: 2008Q1

REPORT INFORMATION
  Report Type: 
  Country: None (occurrence: None)
  Receive Date: 20080212
  Receipt Date: 20080202
  Transmission Date: 20080703
  Serious: Yes (Other)
  Sender: FDA-Public Use
  Company Number: US-JNJFOC-20080101692

PATIENT
  Sex: Female
  Weight: 63.5 kg

DRUGS (5)
  1. ORTHO TRI-CYCLEN LO [Suspect]
     Indication: MENSTRUATION IRREGULAR
     Route: 048
  2. ORTHO TRI-CYCLEN LO [Suspect]
     Indication: CONTRACEPTION
     Route: 048
  3. LAMICTAL [Suspect]
     Indication: CONVULSION
     Route: 048
  4. ZONISAMIDE [Suspect]
     Indication: CONVULSION
     Route: 048
  5. ALBUTEROL [Concomitant]
     Indication: ASTHMA
     Route: 055

REACTIONS (1)
  - CONVULSION [None]
